FAERS Safety Report 24911070 (Version 1)
Quarter: 2025Q1

REPORT INFORMATION
  Report Type: Spontaneous
  Country: CO (occurrence: CO)
  Receive Date: 20250131
  Receipt Date: 20250131
  Transmission Date: 20250409
  Serious: Yes (Death, Hospitalization, Other)
  Sender: AZURITY PHARMACEUTICALS
  Company Number: CO-AZURITY PHARMACEUTICALS, INC.-AZR202501-000412

PATIENT
  Age: 75 Year
  Sex: Female

DRUGS (2)
  1. METHYLPREDNISOLONE ACETATE [Suspect]
     Active Substance: METHYLPREDNISOLONE ACETATE
     Indication: Acute respiratory distress syndrome
     Route: 042
  2. OSELTAMIVIR [Concomitant]
     Active Substance: OSELTAMIVIR
     Indication: H1N1 influenza
     Route: 065

REACTIONS (9)
  - Ecthyma [Fatal]
  - Respiratory disorder [Fatal]
  - Multiple organ dysfunction syndrome [Fatal]
  - Thrombocytopenia [Unknown]
  - Acute kidney injury [Unknown]
  - Stenotrophomonas maltophilia pneumonia [Fatal]
  - Cryptococcosis [Fatal]
  - Candida infection [Unknown]
  - Gastrointestinal haemorrhage [Unknown]
